FAERS Safety Report 4699290-X (Version None)
Quarter: 2005Q2

REPORT INFORMATION
  Report Type: 
  Country: None (occurrence: None)
  Receive Date: 20050624
  Receipt Date: 20050621
  Transmission Date: 20051028
  Serious: Yes (Other)
  Sender: FDA-Public Use
  Company Number: US-GLAXOSMITHKLINE-A0563612A

PATIENT

DRUGS (2)
  1. LAMICTAL [Suspect]
     Route: 048
  2. LIPITOR [Suspect]

REACTIONS (2)
  - CONVULSION [None]
  - DRUG INTERACTION [None]
